FAERS Safety Report 20450519 (Version 1)
Quarter: 2022Q1

REPORT INFORMATION
  Report Type: Spontaneous
  Country: US (occurrence: None)
  Receive Date: 20220209
  Receipt Date: 20220209
  Transmission Date: 20220423
  Serious: Yes (Death)
  Sender: FDA-Public Use
  Company Number: None

PATIENT
  Age: 51 Year
  Sex: Male

DRUGS (1)
  1. NUWIQ [Suspect]
     Active Substance: ANTIHEMOPHILIC FACTOR, HUMAN RECOMBINANT
     Indication: Factor VIII deficiency
     Dosage: OTHER QUANTITY : 4000U;?OTHER FREQUENCY : EVERY 48 HOURS;?
     Route: 042
     Dates: start: 202109, end: 20220206

REACTIONS (2)
  - COVID-19 [None]
  - Disease complication [None]

NARRATIVE: CASE EVENT DATE: 20220208
